FAERS Safety Report 6139942-8 (Version None)
Quarter: 2009Q2

REPORT INFORMATION
  Report Type: 
  Country: None (occurrence: None)
  Receive Date: 20090401
  Receipt Date: 20090330
  Transmission Date: 20091009
  Serious: Yes (Other)
  Sender: FDA-Public Use
  Company Number: US-ELI_LILLY_AND_COMPANY-US200903007635

PATIENT
  Sex: Female
  Weight: 86.168 kg

DRUGS (5)
  1. BYETTA [Suspect]
     Indication: TYPE 2 DIABETES MELLITUS
     Dosage: 5 UG, 2/D
     Route: 058
     Dates: start: 20060101
  2. METFORMIN HCL [Concomitant]
     Indication: TYPE 2 DIABETES MELLITUS
     Dosage: 500 MG, 2/D
     Route: 048
  3. ESCITALOPRAM [Concomitant]
     Indication: ANXIETY
     Dosage: UNK, UNKNOWN
  4. FISH OIL [Concomitant]
     Dosage: UNK, UNKNOWN
  5. VITAMINS [Concomitant]
     Dosage: UNK, UNKNOWN

REACTIONS (8)
  - COUGH [None]
  - CYSTITIS [None]
  - DIARRHOEA [None]
  - INJECTION SITE PAIN [None]
  - NASOPHARYNGITIS [None]
  - OROPHARYNGEAL PAIN [None]
  - RECTOCELE [None]
  - URINARY INCONTINENCE [None]
